FAERS Safety Report 21533373 (Version 1)
Quarter: 2022Q4

REPORT INFORMATION
  Report Type: Spontaneous
  Country: US (occurrence: None)
  Receive Date: 20221031
  Receipt Date: 20221031
  Transmission Date: 20230112
  Serious: No
  Sender: FDA-Public Use
  Company Number: None

PATIENT
  Sex: Female

DRUGS (2)
  1. ENBREL [Suspect]
     Active Substance: ETANERCEPT
  2. OTEZLA [Suspect]
     Active Substance: APREMILAST

REACTIONS (5)
  - Decreased appetite [None]
  - Abdominal discomfort [None]
  - Dizziness [None]
  - Insomnia [None]
  - Weight decreased [None]
